FAERS Safety Report 4547078-2 (Version None)
Quarter: 2005Q1

REPORT INFORMATION
  Report Type: 
  Country: None (occurrence: None)
  Receive Date: 20050105
  Receipt Date: 20041228
  Transmission Date: 20050727
  Serious: Yes (Other)
  Sender: FDA-Public Use
  Company Number: 211357

PATIENT

DRUGS (1)
  1. XOLAIR [Suspect]

REACTIONS (1)
  - CEREBROVASCULAR ACCIDENT [None]
